FAERS Safety Report 17450691 (Version 1)
Quarter: 2020Q1

REPORT INFORMATION
  Report Type: Spontaneous
  Country: US (occurrence: US)
  Receive Date: 20200222
  Receipt Date: 20200222
  Transmission Date: 20200409
  Serious: Yes (Hospitalization)
  Sender: FDA-Public Use
  Company Number: None

PATIENT
  Age: 54 Year
  Sex: Female
  Weight: 67.95 kg

DRUGS (1)
  1. ARESTIN [Suspect]
     Active Substance: MINOCYCLINE HYDROCHLORIDE
     Indication: PERIODONTITIS
     Dosage: ?          OTHER ROUTE:INJECTED INTO GUMS/ROOT (TOOTH)?
     Dates: start: 20200205, end: 20200205

REACTIONS (7)
  - Rash [None]
  - Myalgia [None]
  - Pruritus [None]
  - Swelling [None]
  - Erythema [None]
  - Urticaria [None]
  - Asthenia [None]

NARRATIVE: CASE EVENT DATE: 20200218
